FAERS Safety Report 4299303-3 (Version None)
Quarter: 2004Q1

REPORT INFORMATION
  Report Type: 
  Country: None (occurrence: None)
  Receive Date: 20040217
  Receipt Date: 20040209
  Transmission Date: 20041129
  Serious: No
  Sender: FDA-Public Use
  Company Number: 2004UW02268

PATIENT
  Age: 71 Year
  Sex: Female
  Weight: 61.2356 kg

DRUGS (7)
  1. MERREM [Suspect]
     Indication: PSEUDOMONAS INFECTION
     Dosage: 1.5 G BID IV
     Route: 042
  2. VIOXX [Concomitant]
  3. IMURAN [Concomitant]
  4. SYNTHROID [Concomitant]
  5. COREG [Concomitant]
  6. CALCIUM [Concomitant]
  7. VALTREX [Concomitant]

REACTIONS (5)
  - CONSTIPATION [None]
  - DRY SKIN [None]
  - HEADACHE [None]
  - HYPERTENSION [None]
  - OTOTOXICITY [None]
